FAERS Safety Report 8849831 (Version 2)
Quarter: 2012Q4

REPORT INFORMATION
  Report Type: 
  Country: BE (occurrence: BE)
  Receive Date: 20121019
  Receipt Date: 20121106
  Transmission Date: 20130627
  Serious: Yes (Death, Other)
  Sender: FDA-Public Use
  Company Number: BE-ROCHE-692574

PATIENT
  Sex: Female

DRUGS (4)
  1. TRASTUZUMAB [Suspect]
     Indication: BREAST CANCER
     Dosage: LOADING DOSE
     Route: 042
  2. TRASTUZUMAB [Suspect]
     Dosage: MAINTENANCE DOSE
     Route: 042
  3. SUNITINIB [Suspect]
     Indication: BREAST CANCER
     Dosage: TAKEN AS ONCE DAILY FOR 2 WEEKS EVERY 3 WEEKS, STARTING FROM DAY 2
     Route: 048
  4. DOCETAXEL [Suspect]
     Indication: BREAST CANCER
     Dosage: ON DAY 1
     Route: 042

REACTIONS (21)
  - Multi-organ failure [Fatal]
  - Respiratory failure [Unknown]
  - Acute respiratory distress syndrome [Unknown]
  - Transaminases increased [Unknown]
  - Neutropenia [Unknown]
  - Lymphopenia [Unknown]
  - Leukopenia [Unknown]
  - Intestinal perforation [Unknown]
  - Diarrhoea [Unknown]
  - Asthenia [Unknown]
  - Stomatitis [Unknown]
  - Vomiting [Unknown]
  - Fatigue [Unknown]
  - Dyspnoea [Unknown]
  - Pyrexia [Unknown]
  - Hypertension [Unknown]
  - Anaemia [Unknown]
  - Thrombocytopenia [Unknown]
  - Febrile neutropenia [Unknown]
  - Supraventricular tachycardia [Unknown]
  - Ejection fraction decreased [Unknown]
